FAERS Safety Report 10953298 (Version 1)
Quarter: 2015Q1

REPORT INFORMATION
  Report Type: Spontaneous
  Country: US (occurrence: US)
  Receive Date: 20150325
  Receipt Date: 20150325
  Transmission Date: 20150721
  Serious: No
  Sender: FDA-Public Use
  Company Number: US-PFIZER INC-2015101664

PATIENT
  Sex: Female

DRUGS (1)
  1. SUTENT [Suspect]
     Active Substance: SUNITINIB MALATE
     Indication: OVARIAN CANCER
     Dosage: UNK

REACTIONS (3)
  - Disease progression [Unknown]
  - Ovarian cancer [Unknown]
  - Product use issue [Unknown]
